FAERS Safety Report 9541948 (Version 2)
Quarter: 2013Q3

REPORT INFORMATION
  Report Type: Spontaneous
  Country: JP (occurrence: None)
  Receive Date: 20130918
  Receipt Date: 20130927
  Transmission Date: 20140515
  Serious: Yes (Other)
  Sender: FDA-Public Use
  Company Number: ENT 2013-0165

PATIENT
  Sex: Male

DRUGS (1)
  1. COMTAN [Suspect]
     Route: 048

REACTIONS (1)
  - Dysphagia [None]
